FAERS Safety Report 7550340-2 (Version None)
Quarter: 2011Q2

REPORT INFORMATION
  Report Type: 
  Country: None (occurrence: None)
  Receive Date: 20110615
  Receipt Date: 20100804
  Transmission Date: 20111010
  Serious: No
  Sender: FDA-Public Use
  Company Number: A0874029A

PATIENT
  Sex: Female

DRUGS (1)
  1. PARNATE [Suspect]
     Route: 048
     Dates: end: 20100712

REACTIONS (3)
  - FATIGUE [None]
  - DYSPHONIA [None]
  - DYSPNOEA [None]
